FAERS Safety Report 13170006 (Version 1)
Quarter: 2017Q1

REPORT INFORMATION
  Report Type: Spontaneous
  Country: US (occurrence: US)
  Receive Date: 20170131
  Receipt Date: 20170131
  Transmission Date: 20170428
  Serious: No
  Sender: FDA-Public Use
  Company Number: US-ABBVIE-16K-163-1601727-00

PATIENT
  Age: 55 Year
  Sex: Male

DRUGS (2)
  1. HUMIRA [Suspect]
     Active Substance: ADALIMUMAB
     Dosage: LOADING DOSE
     Route: 058
     Dates: start: 2016, end: 2016
  2. HUMIRA [Suspect]
     Active Substance: ADALIMUMAB
     Indication: CROHN^S DISEASE
     Dosage: LOADING DOSE
     Route: 058
     Dates: start: 2016, end: 2016

REACTIONS (3)
  - Folliculitis [Unknown]
  - Sinusitis [Unknown]
  - Cellulitis [Unknown]

NARRATIVE: CASE EVENT DATE: 2016
